FAERS Safety Report 19391498 (Version 4)
Quarter: 2023Q1

REPORT INFORMATION
  Report Type: Spontaneous
  Country: US (occurrence: US)
  Receive Date: 20210608
  Receipt Date: 20230202
  Transmission Date: 20230417
  Serious: No
  Sender: FDA-Public Use
  Company Number: US-RHYTHM PHARMACEUTICALS, INC.-2021RHM000010

PATIENT
  Age: 10 Year
  Sex: Female

DRUGS (1)
  1. IMCIVREE [Suspect]
     Active Substance: SETMELANOTIDE
     Indication: Off label use
     Dosage: 2 MG (0.2 ML)
     Route: 058
     Dates: start: 20210319, end: 202109

REACTIONS (10)
  - Urinary incontinence [Not Recovered/Not Resolved]
  - Inappropriate schedule of product administration [Not Recovered/Not Resolved]
  - Weight loss poor [Not Recovered/Not Resolved]
  - Pain [Not Recovered/Not Resolved]
  - Off label use [Recovered/Resolved]
  - Abdominal pain [Not Recovered/Not Resolved]
  - Nausea [Not Recovered/Not Resolved]
  - Injection site bruising [Not Recovered/Not Resolved]
  - Injection site pain [Not Recovered/Not Resolved]
  - Diarrhoea [Not Recovered/Not Resolved]

NARRATIVE: CASE EVENT DATE: 20210101
